FAERS Safety Report 6725108-7 (Version None)
Quarter: 2010Q2

REPORT INFORMATION
  Report Type: 
  Country: None (occurrence: None)
  Receive Date: 20100514
  Receipt Date: 20100504
  Transmission Date: 20101027
  Serious: Yes (Hospitalization, Other)
  Sender: FDA-Public Use
  Company Number: US-BAYER-201014339NA

PATIENT
  Age: 46 Year
  Sex: Female
  Weight: 57 kg

DRUGS (5)
  1. YAZ [Suspect]
     Indication: CONTRACEPTION
     Route: 048
     Dates: start: 20070601, end: 20080201
  2. VICODIN [Concomitant]
     Indication: MIGRAINE
     Dosage: HYDROCODONE/APAP (500 MG/50 MG)
     Dates: start: 20000101
  3. ALBUTEROL [Concomitant]
     Indication: ASTHMA
     Dosage: 2 PUFFS
     Route: 055
     Dates: start: 19800101
  4. VITAMIN C [Concomitant]
     Dates: start: 20000101
  5. NONSTEROIDAL ANTI-INFLAMMATORY DRUGS [Concomitant]

REACTIONS (8)
  - BONE PAIN [None]
  - BRAIN NEOPLASM [None]
  - CHOLECYSTITIS ACUTE [None]
  - CHOLELITHIASIS [None]
  - HEADACHE [None]
  - MYALGIA [None]
  - NAUSEA [None]
  - VOMITING [None]
